FAERS Safety Report 24119820 (Version 2)
Quarter: 2024Q3

REPORT INFORMATION
  Report Type: Report from Study
  Country: NL (occurrence: NL)
  Receive Date: 20240722
  Receipt Date: 20240801
  Transmission Date: 20241016
  Serious: Yes (Hospitalization, Other)
  Sender: NORDIC PHARMA
  Company Number: NL-ABBVIE-5506658

PATIENT
  Sex: Female

DRUGS (5)
  1. METHOTREXATE [Suspect]
     Active Substance: METHOTREXATE
     Indication: Crohn^s disease
     Route: 065
     Dates: start: 202308, end: 202310
  2. VEDOLIZUMAB [Concomitant]
     Active Substance: VEDOLIZUMAB
     Indication: Crohn^s disease
     Route: 065
     Dates: start: 2021, end: 202308
  3. USTEKINUMAB [Concomitant]
     Active Substance: USTEKINUMAB
     Indication: Crohn^s disease
     Route: 065
     Dates: start: 2021
  4. ADALIMUMAB [Concomitant]
     Active Substance: ADALIMUMAB
     Indication: Stoma site oedema
     Route: 058
     Dates: start: 202308, end: 202310
  5. PREDNISOLONE [Concomitant]
     Active Substance: PREDNISOLONE
     Indication: Crohn^s disease
     Route: 065
     Dates: start: 2019

REACTIONS (5)
  - Stoma site oedema [Recovering/Resolving]
  - Enteral nutrition [Unknown]
  - Depression [Not Recovered/Not Resolved]
  - Crohn^s disease [Recovering/Resolving]
  - Arteriosclerosis coronary artery [Unknown]

NARRATIVE: CASE EVENT DATE: 20230101
